FAERS Safety Report 11429057 (Version 1)
Quarter: 2015Q3

REPORT INFORMATION
  Report Type: Spontaneous
  Country: US (occurrence: US)
  Receive Date: 20150828
  Receipt Date: 20150828
  Transmission Date: 20151125
  Serious: No
  Sender: FDA-Public Use
  Company Number: US-ROCHE-1218681

PATIENT
  Sex: Female

DRUGS (4)
  1. COPEGUS [Suspect]
     Active Substance: RIBAVIRIN
     Dosage: 2-200MG TABS EVERY AFTERNOON
     Route: 048
     Dates: start: 20130413
  2. PEGASYS [Suspect]
     Active Substance: PEGINTERFERON ALFA-2A
     Indication: HEPATITIS C
     Route: 058
     Dates: start: 20130413, end: 20130424
  3. INCIVEK [Suspect]
     Active Substance: TELAPREVIR
     Indication: HEPATITIS C
     Dosage: 2-375MG TABS 3 TIMES A DAY
     Route: 048
     Dates: start: 20130413
  4. COPEGUS [Suspect]
     Active Substance: RIBAVIRIN
     Indication: HEPATITIS C
     Dosage: 3-200MG TABS EVERY MORNING
     Route: 048
     Dates: start: 20130413

REACTIONS (1)
  - Rash [Not Recovered/Not Resolved]
